FAERS Safety Report 10174364 (Version 2)
Quarter: 2014Q2

REPORT INFORMATION
  Report Type: Spontaneous
  Country: US (occurrence: US)
  Receive Date: 20140515
  Receipt Date: 20140602
  Transmission Date: 20141212
  Serious: Yes (Other)
  Sender: FDA-Public Use
  Company Number: US-SHIRE-US201402038

PATIENT
  Age: 5 Year
  Sex: Male

DRUGS (5)
  1. VYVANSE [Suspect]
     Indication: ATTENTION DEFICIT/HYPERACTIVITY DISORDER
     Dosage: 30 MG, 1X/DAY:QD
     Route: 048
     Dates: start: 201303, end: 2014
  2. VYVANSE [Suspect]
     Indication: ASPERGER^S DISORDER
     Dosage: UNK, UNKNOWN
     Route: 048
     Dates: start: 2014
  3. CLONIDINE [Concomitant]
     Indication: AGGRESSION
     Dosage: 0.05 MG, 1X/DAY:QD (IN THE AM)
     Route: 065
     Dates: start: 201207
  4. CLONIDINE [Concomitant]
     Indication: ATTENTION DEFICIT/HYPERACTIVITY DISORDER
     Dosage: 0.1 MG, 1X/DAY:QD (AFTER SCHOOL)
     Route: 065
     Dates: start: 201207
  5. CLONIDINE [Concomitant]
     Dosage: 0.15 MG, 1X/DAY:QD (IN THE PM)
     Route: 065
     Dates: start: 201207

REACTIONS (6)
  - Hallucinations, mixed [Recovered/Resolved]
  - Psychotic behaviour [Recovered/Resolved]
  - Mania [Recovered/Resolved]
  - Agitation [Recovered/Resolved]
  - Insomnia [Recovered/Resolved]
  - Off label use [Not Recovered/Not Resolved]
